FAERS Safety Report 5312856-9 (Version None)
Quarter: 2007Q2

REPORT INFORMATION
  Report Type: 
  Country: None (occurrence: None)
  Receive Date: 20070430
  Receipt Date: 20070418
  Transmission Date: 20071010
  Serious: Yes (Other)
  Sender: FDA-Public Use
  Company Number: FR-PFIZER INC-2007023346

PATIENT
  Sex: Male
  Weight: 87 kg

DRUGS (9)
  1. LYRICA [Suspect]
     Indication: NEURALGIA
     Route: 048
     Dates: start: 20061010, end: 20070130
  2. ATORVASTATIN CALCIUM [Interacting]
     Indication: DYSLIPIDAEMIA
     Route: 048
  3. BUFLOMEDIL [Interacting]
  4. PLAVIX [Concomitant]
  5. TAHOR [Concomitant]
  6. VERAPAMIL [Concomitant]
     Route: 048
  7. ZOPICLONE [Concomitant]
     Route: 048
     Dates: start: 20030710
  8. PERINDOPRIL [Concomitant]
     Route: 048
     Dates: start: 20041109
  9. PANTOPRAZOLE [Concomitant]
     Route: 048
     Dates: start: 20050524

REACTIONS (3)
  - DRUG INTERACTION [None]
  - INCREASED APPETITE [None]
  - WEIGHT INCREASED [None]
